FAERS Safety Report 8260835-4 (Version None)
Quarter: 2012Q2

REPORT INFORMATION
  Report Type: 
  Country: None (occurrence: None)
  Receive Date: 20120402
  Receipt Date: 20120323
  Transmission Date: 20120825
  Serious: Yes (Hospitalization)
  Sender: FDA-Public Use
  Company Number: AMAG201202980

PATIENT
  Age: 50 Year
  Sex: Female
  Weight: 54.9 kg

DRUGS (4)
  1. FERAHEME [Suspect]
     Indication: IRON DEFICIENCY ANAEMIA
     Dosage: UNK
     Dates: start: 20111001, end: 20111001
  2. VITAMIN B12 (HYDROXOCOBALAMIN) [Concomitant]
  3. CORTICOSTEROIDS [Concomitant]
  4. IRON (IRON) [Concomitant]

REACTIONS (3)
  - TREMOR [None]
  - HEADACHE [None]
  - CONVULSION [None]
